FAERS Safety Report 15979456 (Version 6)
Quarter: 2020Q4

REPORT INFORMATION
  Report Type: Spontaneous
  Country: US (occurrence: US)
  Receive Date: 20190219
  Receipt Date: 20201210
  Transmission Date: 20210113
  Serious: Yes (Hospitalization, Other)
  Sender: FDA-Public Use
  Company Number: US-PFIZER INC-2019062551

PATIENT
  Age: 89 Year
  Sex: Male

DRUGS (4)
  1. XELJANZ [Suspect]
     Active Substance: TOFACITINIB CITRATE
     Indication: COLITIS ULCERATIVE
     Dosage: 5 MG, 2X/DAY
     Dates: start: 20190206
  2. POTASSIUM [Concomitant]
     Active Substance: POTASSIUM
     Dosage: UNK
  3. XELJANZ [Suspect]
     Active Substance: TOFACITINIB CITRATE
     Dosage: 5 MG, 2X/DAY (ONE TABLET TWICE DAILY)
     Route: 048
     Dates: start: 2019
  4. VITAMIN D [COLECALCIFEROL] [Concomitant]
     Active Substance: CHOLECALCIFEROL
     Dosage: UNK

REACTIONS (14)
  - Diarrhoea [Recovering/Resolving]
  - Disorientation [Unknown]
  - Drug ineffective [Unknown]
  - Abdominal pain upper [Unknown]
  - Constipation [Unknown]
  - Arthralgia [Unknown]
  - Syncope [Unknown]
  - Nightmare [Unknown]
  - Abdominal pain [Unknown]
  - Faeces discoloured [Unknown]
  - Haemorrhage [Unknown]
  - Hypoacusis [Unknown]
  - Nasal congestion [Unknown]
  - Thrombosis [Unknown]

NARRATIVE: CASE EVENT DATE: 2019
